FAERS Safety Report 13457785 (Version 1)
Quarter: 2017Q2

REPORT INFORMATION
  Report Type: Spontaneous
  Country: JP (occurrence: JP)
  Receive Date: 20170419
  Receipt Date: 20170419
  Transmission Date: 20170830
  Serious: Yes (Hospitalization, Other)
  Sender: FDA-Public Use
  Company Number: JP-LUPIN PHARMACEUTICALS INC.-2017-01850

PATIENT
  Age: 63 Year
  Sex: Male
  Weight: 55 kg

DRUGS (13)
  1. BETAHISTINE MESILATE [Concomitant]
     Active Substance: BETAHISTINE MESILATE
     Indication: VERTIGO
     Dosage: UNK
  2. ADENOSINE TRIPHOSPHATE, DISODIUM SALT [Concomitant]
     Indication: VERTIGO
     Dosage: UNK
  3. CLOTIAZEPAM [Concomitant]
     Active Substance: CLOTIAZEPAM
     Indication: VERTIGO
     Dosage: UNK
  4. BETAHISTINE MESILATE [Concomitant]
     Active Substance: BETAHISTINE MESILATE
     Indication: HYPERTENSION
  5. MECOBALAMIN [Concomitant]
     Active Substance: METHYLCOBALAMIN
     Indication: HYPERTENSION
  6. CLOTIAZEPAM [Concomitant]
     Active Substance: CLOTIAZEPAM
     Indication: HYPERTENSION
  7. AMLODIPINE BESILATE [Concomitant]
     Active Substance: AMLODIPINE BESYLATE
     Indication: HYPERTENSION
  8. AMLODIPINE BESILATE [Concomitant]
     Active Substance: AMLODIPINE BESYLATE
     Indication: VERTIGO
     Dosage: UNK
  9. CLARITHROMYCIN. [Suspect]
     Active Substance: CLARITHROMYCIN
     Indication: HELICOBACTER INFECTION
     Dosage: 200 MG, BID
     Dates: start: 201403
  10. AMOXICILLIN. [Suspect]
     Active Substance: AMOXICILLIN
     Indication: HELICOBACTER INFECTION
     Dosage: 750 MG, UNK
     Dates: start: 201403
  11. LANSOPRAZOLE. [Suspect]
     Active Substance: LANSOPRAZOLE
     Indication: HELICOBACTER INFECTION
     Dosage: 30 MG, UNK
     Dates: start: 201403
  12. MECOBALAMIN [Concomitant]
     Active Substance: METHYLCOBALAMIN
     Indication: VERTIGO
     Dosage: UNK
  13. ADENOSINE TRIPHOSPHATE, DISODIUM SALT [Concomitant]
     Indication: HYPERTENSION

REACTIONS (1)
  - Colitis ulcerative [Recovering/Resolving]
